FAERS Safety Report 4856300-4 (Version None)
Quarter: 2005Q4

REPORT INFORMATION
  Report Type: 
  Country: None (occurrence: None)
  Receive Date: 20051219
  Receipt Date: 20051208
  Transmission Date: 20060501
  Serious: Yes (Other)
  Sender: FDA-Public Use
  Company Number: DE-JNJFOC-20051103281

PATIENT
  Age: 69 Year
  Sex: Female
  Weight: 58 kg

DRUGS (9)
  1. INFLIXIMAB [Suspect]
     Route: 042
  2. INFLIXIMAB [Suspect]
     Route: 042
  3. INFLIXIMAB [Suspect]
     Indication: RHEUMATOID ARTHRITIS
     Route: 042
  4. DECORTIN H [Concomitant]
     Indication: RHEUMATOID ARTHRITIS
     Route: 048
  5. ACEMETACIN [Concomitant]
     Indication: RHEUMATOID ARTHRITIS
     Route: 065
  6. CALCIUM CARBONATE [Concomitant]
     Indication: OSTEOPENIA
     Route: 065
  7. FOSINOPRIL [Concomitant]
     Route: 065
  8. TRIAMTERENE [Concomitant]
     Route: 048
  9. PANTOZOLE [Concomitant]
     Indication: GASTROINTESTINAL DISORDER THERAPY
     Route: 065

REACTIONS (2)
  - DIVERTICULAR PERFORATION [None]
  - STAPHYLOCOCCAL INFECTION [None]
